FAERS Safety Report 5909325-1 (Version None)
Quarter: 2008Q4

REPORT INFORMATION
  Report Type: 
  Country: None (occurrence: None)
  Receive Date: 20081006
  Receipt Date: 20080926
  Transmission Date: 20090506
  Serious: Yes (Disabling)
  Sender: FDA-Public Use
  Company Number: GB-PFIZER INC-2008081517

PATIENT
  Age: 66 Year
  Sex: Female
  Weight: 90 kg

DRUGS (5)
  1. CELECOXIB [Suspect]
     Indication: OSTEOARTHRITIS
     Route: 048
     Dates: start: 20080701, end: 20080818
  2. BISOPROLOL [Concomitant]
     Dates: start: 20051214
  3. DOXAZOSIN MESYLATE [Concomitant]
     Route: 048
     Dates: start: 20060608
  4. LANSOPRAZOLE [Concomitant]
     Route: 048
     Dates: start: 20080130
  5. TRAMADOL HCL [Concomitant]
     Route: 048
     Dates: start: 20061107

REACTIONS (2)
  - HALLUCINATION, VISUAL [None]
  - INSOMNIA [None]
